FAERS Safety Report 4585587-0 (Version None)
Quarter: 2005Q2

REPORT INFORMATION
  Report Type: 
  Country: None (occurrence: None)
  Receive Date: 20050217
  Receipt Date: 20050114
  Transmission Date: 20051028
  Serious: Yes (Death, Other)
  Sender: FDA-Public Use
  Company Number: US-MERCK-0501USA02746

PATIENT
  Age: 3 Year
  Sex: Male

DRUGS (3)
  1. ELSPAR [Suspect]
     Indication: ACUTE LYMPHOCYTIC LEUKAEMIA
     Route: 042
  2. VINCRISTINE SULFATE [Concomitant]
     Indication: ACUTE LYMPHOCYTIC LEUKAEMIA
     Route: 065
  3. PREDNISONE [Concomitant]
     Route: 065

REACTIONS (14)
  - ACTIVATED PARTIAL THROMBOPLASTIN TIME PROLONGED [None]
  - ANTITHROMBIN III DECREASED [None]
  - ENCEPHALOMALACIA [None]
  - FIBRIN DEGRADATION PRODUCTS INCREASED [None]
  - HYPONATRAEMIA [None]
  - INFARCTION [None]
  - INTRACRANIAL PRESSURE INCREASED [None]
  - MUCORMYCOSIS [None]
  - NEUTROPENIA [None]
  - PLASMINOGEN DECREASED [None]
  - PNEUMONIA FUNGAL [None]
  - PROTHROMBIN LEVEL INCREASED [None]
  - PYREXIA [None]
  - THROMBOSIS [None]
